FAERS Safety Report 12525412 (Version 1)
Quarter: 2016Q3

REPORT INFORMATION
  Report Type: Spontaneous
  Country: US (occurrence: US)
  Receive Date: 20160704
  Receipt Date: 20160704
  Transmission Date: 20161109
  Serious: Yes (Other)
  Sender: FDA-Public Use
  Company Number: US-BAUSCH-BL-2016-015290

PATIENT
  Age: 81 Year
  Sex: Female
  Weight: 64.92 kg

DRUGS (1)
  1. SOOTHE LONG LASTING (PRESERVATIVE FREE) [Suspect]
     Active Substance: GLYCERIN\PROPYLENE GLYCOL
     Indication: DRY EYE
     Route: 047
     Dates: start: 2015

REACTIONS (4)
  - Cataract operation [Unknown]
  - Wrong technique in product usage process [Unknown]
  - Eye haemorrhage [Unknown]
  - Drug ineffective [Unknown]

NARRATIVE: CASE EVENT DATE: 201510
